FAERS Safety Report 23128181 (Version 3)
Quarter: 2023Q4

REPORT INFORMATION
  Report Type: Spontaneous
  Country: US (occurrence: US)
  Receive Date: 20231031
  Receipt Date: 20231228
  Transmission Date: 20240109
  Serious: No
  Sender: FDA-Public Use
  Company Number: US-OPELLA-2023OHG010132

PATIENT

DRUGS (1)
  1. SELSUN BLUE 2-IN-1 [Suspect]
     Active Substance: SELENIUM SULFIDE
     Indication: Dandruff
     Dosage: STRENGTH-6,5 G/325 ML

REACTIONS (2)
  - Drug ineffective [Unknown]
  - No adverse event [Unknown]
